FAERS Safety Report 8461151-8 (Version None)
Quarter: 2012Q2

REPORT INFORMATION
  Report Type: 
  Country: None (occurrence: None)
  Receive Date: 20120625
  Receipt Date: 20120619
  Transmission Date: 20120825
  Serious: No
  Sender: FDA-Public Use
  Company Number: US-PFIZER INC-2012107830

PATIENT
  Sex: Female
  Weight: 104 kg

DRUGS (10)
  1. IRON [Concomitant]
     Dosage: 45 MG, 3X/DAY
  2. OXYCODONE [Concomitant]
     Dosage: 5 MG, UNK
  3. COMPAZINE [Concomitant]
     Dosage: UNK
  4. IRON [Concomitant]
     Dosage: UNK, EVERY DAY
  5. SUTENT [Suspect]
     Indication: RENAL CELL CARCINOMA
     Dosage: 50 MG, CYCLIC
     Dates: start: 20120427
  6. METOPROLOL [Concomitant]
     Dosage: UNK, DAILY
  7. SUTENT [Suspect]
     Dosage: 50 MG, 42 DAY CYCLE
     Dates: start: 20120612
  8. ACETAMINOPHEN [Concomitant]
     Dosage: UNK, AS NEEDED
  9. ONDANSETRON [Concomitant]
     Dosage: UNK
  10. SUTENT [Suspect]
     Dosage: 37.5 MG, UNK

REACTIONS (16)
  - ORAL PAIN [None]
  - HAIR DISORDER [None]
  - HEADACHE [None]
  - BACK PAIN [None]
  - NAUSEA [None]
  - DYSGEUSIA [None]
  - FREQUENT BOWEL MOVEMENTS [None]
  - STOMATITIS [None]
  - CHILLS [None]
  - CHEST DISCOMFORT [None]
  - LUNG DISORDER [None]
  - BLOOD URINE PRESENT [None]
  - ALOPECIA [None]
  - DIARRHOEA [None]
  - SUNBURN [None]
  - HAEMOGLOBIN DECREASED [None]
